FAERS Safety Report 7366347-4 (Version None)
Quarter: 2011Q1

REPORT INFORMATION
  Report Type: 
  Country: None (occurrence: None)
  Receive Date: 20110322
  Receipt Date: 20110309
  Transmission Date: 20110831
  Serious: Yes (Other)
  Sender: FDA-Public Use
  Company Number: US-SANOFI-AVENTIS-2010SA074908

PATIENT
  Age: 51 Year
  Sex: Male

DRUGS (2)
  1. SOLOSTAR [Suspect]
     Indication: TYPE 2 DIABETES MELLITUS
     Dates: start: 20100601
  2. LANTUS [Suspect]
     Indication: TYPE 2 DIABETES MELLITUS
     Dosage: TAKING 40-50 UNITS DAILY
     Route: 058
     Dates: start: 20100601

REACTIONS (3)
  - FEELING ABNORMAL [None]
  - OVERDOSE [None]
  - DEVICE MALFUNCTION [None]
